FAERS Safety Report 13314680 (Version 2)
Quarter: 2017Q2

REPORT INFORMATION
  Report Type: Spontaneous
  Country: PL (occurrence: PL)
  Receive Date: 20170309
  Receipt Date: 20170525
  Transmission Date: 20170830
  Serious: Yes (Hospitalization)
  Sender: FDA-Public Use
  Company Number: PL-ABBVIE-17P-129-1879008-00

PATIENT
  Sex: Male
  Weight: 72 kg

DRUGS (2)
  1. VIEKIRAX [Suspect]
     Active Substance: OMBITASVIR\PARITAPREVIR\RITONAVIR
     Indication: HEPATITIS C
     Route: 048
     Dates: start: 20161205, end: 20170204
  2. EXVIERA [Suspect]
     Active Substance: DASABUVIR
     Indication: HEPATITIS C
     Route: 048
     Dates: start: 20161205, end: 20170204

REACTIONS (6)
  - Asthenia [Unknown]
  - Alanine aminotransferase increased [Recovering/Resolving]
  - Somnolence [Unknown]
  - Muscular weakness [Unknown]
  - Fatigue [Unknown]
  - Aspartate aminotransferase increased [Recovering/Resolving]
